FAERS Safety Report 6354702-0 (Version None)
Quarter: 2009Q3

REPORT INFORMATION
  Report Type: 
  Country: None (occurrence: None)
  Receive Date: 20090914
  Receipt Date: 20090909
  Transmission Date: 20100115
  Serious: Yes (Other)
  Sender: FDA-Public Use
  Company Number: US-ELI_LILLY_AND_COMPANY-US200909001975

PATIENT
  Sex: Female

DRUGS (3)
  1. HUMALOG [Suspect]
     Dosage: UNK, 3/D
     Dates: start: 20090101
  2. GLIPIZIDE [Concomitant]
  3. LANTUS [Concomitant]
     Dosage: UNK, DAILY (1/D)

REACTIONS (1)
  - LIVER DISORDER [None]
